FAERS Safety Report 24462781 (Version 1)
Quarter: 2024Q4

REPORT INFORMATION
  Report Type: Spontaneous
  Country: US (occurrence: US)
  Receive Date: 20241018
  Receipt Date: 20241018
  Transmission Date: 20250115
  Serious: Yes (Other)
  Sender: MYLAN
  Company Number: US-MYLANLABS-2024M1094188

PATIENT
  Age: 34 Year
  Sex: Female

DRUGS (5)
  1. PREDNISONE [Suspect]
     Active Substance: PREDNISONE
     Indication: Susac^s syndrome
     Dosage: 60 MILLIGRAM
     Route: 065
  2. CYCLOPHOSPHAMIDE [Suspect]
     Active Substance: CYCLOPHOSPHAMIDE
     Indication: Susac^s syndrome
     Dosage: 750 MILLIGRAM/SQ. METER
     Route: 065
  3. METHYLPREDNISOLONE [Concomitant]
     Active Substance: METHYLPREDNISOLONE
     Indication: Susac^s syndrome
     Dosage: UNK, HIGH DOSE
     Route: 042
  4. METHYLPREDNISOLONE [Concomitant]
     Active Substance: METHYLPREDNISOLONE
     Dosage: UNK, HIGH DOSE
     Route: 042
  5. Immunoglobulin [Concomitant]
     Indication: Susac^s syndrome
     Dosage: 2G/KG SPLIT OVER 2 DAYS
     Route: 042

REACTIONS (1)
  - Drug ineffective [Unknown]
